FAERS Safety Report 16189775 (Version 4)
Quarter: 2019Q2

REPORT INFORMATION
  Report Type: Spontaneous
  Country: FR (occurrence: FR)
  Receive Date: 20190412
  Receipt Date: 20190524
  Transmission Date: 20190711
  Serious: Yes (Hospitalization, Other)
  Sender: FDA-Public Use
  Company Number: FR-MYLANLABS-2019M1034570

PATIENT
  Sex: Female

DRUGS (3)
  1. PAROXETINE. [Interacting]
     Active Substance: PAROXETINE
     Indication: DEPRESSION
     Dosage: 1 DF, QD
     Route: 048
     Dates: start: 2006
  2. PAROXETINE. [Interacting]
     Active Substance: PAROXETINE
     Dosage: 20 MILLIGRAM, QD
     Route: 048
     Dates: start: 2006
  3. TRAMADOL. [Suspect]
     Active Substance: TRAMADOL
     Indication: PRODUCT USED FOR UNKNOWN INDICATION
     Dosage: VIA

REACTIONS (9)
  - Hot flush [Unknown]
  - Rash macular [Unknown]
  - Medication error [Unknown]
  - Labelled drug-drug interaction medication error [Unknown]
  - Blister [Unknown]
  - Dyspnoea [Recovering/Resolving]
  - Paralysis [Unknown]
  - Swollen tongue [Unknown]
  - Angioedema [Unknown]

NARRATIVE: CASE EVENT DATE: 20180930
